FAERS Safety Report 4787622-3 (Version None)
Quarter: 2005Q4

REPORT INFORMATION
  Report Type: 
  Country: None (occurrence: None)
  Receive Date: 20051003
  Receipt Date: 20050921
  Transmission Date: 20060501
  Serious: Yes (Disabling)
  Sender: FDA-Public Use
  Company Number: 2005095302

PATIENT
  Age: 70 Year
  Sex: Female

DRUGS (7)
  1. ATORVASTATIN CALCIUM [Suspect]
     Indication: CARDIAC FAILURE
     Dosage: 10 MG (10 MG, 1 IN 1 D), ORAL
     Route: 048
     Dates: start: 19990401
  2. ATENOLOL [Concomitant]
  3. ASPIRIN [Concomitant]
  4. ATENSINA (CLONIDINE HYDROCHLORIDE) [Concomitant]
  5. CAPTOPRIL [Concomitant]
  6. FLUOXETINE [Concomitant]
  7. METFORMIN HCL [Concomitant]

REACTIONS (5)
  - CEREBROVASCULAR ACCIDENT [None]
  - CONDITION AGGRAVATED [None]
  - DYSGRAPHIA [None]
  - HYPERTENSION [None]
  - INFARCTION [None]
